FAERS Safety Report 7222336-1 (Version None)
Quarter: 2011Q1

REPORT INFORMATION
  Report Type: 
  Country: None (occurrence: None)
  Receive Date: 20110112
  Receipt Date: 20110104
  Transmission Date: 20110831
  Serious: Yes (Hospitalization)
  Sender: FDA-Public Use
  Company Number: FR-ASTRAZENECA-2011SE01181

PATIENT
  Sex: Male

DRUGS (9)
  1. DOLIPRANE [Concomitant]
  2. SEROPLEX [Concomitant]
     Route: 048
  3. KARDEGIC [Suspect]
     Route: 048
     Dates: start: 20101117
  4. KARDEGIC [Suspect]
     Route: 048
     Dates: end: 20101110
  5. LANTUS [Concomitant]
  6. ZESTRIL [Suspect]
     Route: 048
     Dates: end: 20101110
  7. ISOPTIN [Suspect]
     Route: 048
     Dates: end: 20101110
  8. MACROGOL [Concomitant]
  9. OGASTORO [Suspect]
     Route: 048
     Dates: end: 20101110

REACTIONS (1)
  - LEUKOCYTOCLASTIC VASCULITIS [None]
